FAERS Safety Report 8057094-4 (Version None)
Quarter: 2012Q1

REPORT INFORMATION
  Report Type: 
  Country: None (occurrence: None)
  Receive Date: 20120119
  Receipt Date: 20120117
  Transmission Date: 20120608
  Serious: Yes (Other)
  Sender: FDA-Public Use
  Company Number: US-PFIZER INC-2012013430

PATIENT
  Age: 36 Year
  Sex: Male

DRUGS (2)
  1. CELEBREX [Suspect]
     Indication: PAIN IN EXTREMITY
     Dosage: UNK
  2. CELEBREX [Suspect]
     Indication: MUSCULOSKELETAL PAIN

REACTIONS (1)
  - NEPHROLITHIASIS [None]
